FAERS Safety Report 5837805-6 (Version None)
Quarter: 2008Q3

REPORT INFORMATION
  Report Type: 
  Country: None (occurrence: None)
  Receive Date: 20080807
  Receipt Date: 20080729
  Transmission Date: 20090109
  Serious: Yes (Other)
  Sender: FDA-Public Use
  Company Number: US-ABBOTT-08P-163-0466941-00

PATIENT
  Sex: Female
  Weight: 50.6 kg

DRUGS (9)
  1. RITONAVIR SOFT GELATIN CAPSULES [Suspect]
     Indication: HIV INFECTION
     Route: 048
     Dates: start: 20070725
  2. TMC125 [Concomitant]
     Indication: HIV INFECTION
     Route: 048
     Dates: start: 20070725, end: 20071012
  3. PREZISTA [Concomitant]
     Indication: HIV INFECTION
     Route: 048
     Dates: start: 20070725
  4. EMTRICITABINE [Concomitant]
     Indication: HIV INFECTION
     Route: 048
     Dates: start: 20070725, end: 20071012
  5. VALACYCLOVIR [Concomitant]
     Indication: HERPES VIRUS INFECTION
     Route: 048
     Dates: start: 20070712, end: 20070827
  6. VALACYCLOVIR [Concomitant]
     Route: 048
     Dates: end: 20070817
  7. CETIRIZINE HYDROCHLORIDE [Concomitant]
     Indication: SEASONAL ALLERGY
     Route: 048
  8. CEPHALEXIN MONOHYDRATE [Concomitant]
     Indication: BREAST INFECTION
     Route: 048
     Dates: start: 20071012
  9. VITAMIN TAB [Concomitant]
     Indication: VITAMIN SUPPLEMENTATION
     Route: 048
     Dates: start: 20071106

REACTIONS (5)
  - ANAEMIA [None]
  - NAUSEA [None]
  - PREMATURE LABOUR [None]
  - URINARY TRACT INFECTION [None]
  - VOMITING [None]
